FAERS Safety Report 6502685-2 (Version None)
Quarter: 2009Q4

REPORT INFORMATION
  Report Type: 
  Country: None (occurrence: None)
  Receive Date: 20091217
  Receipt Date: 20091204
  Transmission Date: 20100525
  Serious: Yes (Other)
  Sender: FDA-Public Use
  Company Number: US-JNJFOC-20091202341

PATIENT
  Sex: Female
  Weight: 71.67 kg

DRUGS (10)
  1. NUCYNTA [Suspect]
     Indication: FIBROMYALGIA
     Route: 048
  2. NUCYNTA [Suspect]
     Indication: BACK PAIN
     Route: 048
  3. LISINOPRIL [Concomitant]
     Indication: BLOOD PRESSURE
     Dosage: 20 MG TABLETS
     Route: 048
  4. LIPITOR [Concomitant]
     Indication: BLOOD CHOLESTEROL
     Route: 048
  5. NEXIUM [Concomitant]
     Indication: DYSPEPSIA
     Route: 048
  6. PRISTIQ [Concomitant]
     Indication: FIBROMYALGIA
     Route: 048
  7. PRISTIQ [Concomitant]
     Indication: DEPRESSION
     Route: 048
  8. AMITRIPTYLINE [Concomitant]
     Indication: SLEEP DISORDER
     Route: 048
  9. NEURONTIN [Concomitant]
     Indication: FIBROMYALGIA
     Route: 048
  10. RITALIN [Concomitant]
     Indication: ATTENTION DEFICIT/HYPERACTIVITY DISORDER
     Route: 048

REACTIONS (1)
  - BLOOD PRESSURE INCREASED [None]
